FAERS Safety Report 9487416 (Version 3)
Quarter: 2014Q3

REPORT INFORMATION
  Report Type: Spontaneous
  Country: US (occurrence: US)
  Receive Date: 20130725
  Receipt Date: 20140724
  Transmission Date: 20150326
  Serious: Yes (Hospitalization)
  Sender: FDA-Public Use
  Company Number: US-GLAXOSMITHKLINE-A0775086A

PATIENT
  Age: 68 Year
  Sex: Female

DRUGS (1)
  1. AVANDIA [Suspect]
     Active Substance: ROSIGLITAZONE MALEATE
     Indication: DIABETES MELLITUS
     Dosage: 4MG UNKNOWN
     Route: 048

REACTIONS (4)
  - Angina unstable [Not Recovered/Not Resolved]
  - Weight increased [Unknown]
  - Lung disorder [Unknown]
  - Fluid retention [Unknown]

NARRATIVE: CASE EVENT DATE: 200711
